FAERS Safety Report 8083646-1 (Version None)
Quarter: 2012Q1

REPORT INFORMATION
  Report Type: 
  Country: None (occurrence: None)
  Receive Date: 20120127
  Receipt Date: 20110114
  Transmission Date: 20120608
  Serious: Yes (Hospitalization)
  Sender: FDA-Public Use
  Company Number: US-ABBOTT-11P-163-0696660-00

PATIENT
  Sex: Female
  Weight: 74.91 kg

DRUGS (3)
  1. HUMIRA [Suspect]
     Indication: RHEUMATOID ARTHRITIS
     Route: 058
     Dates: start: 20100401, end: 20101001
  2. METHOTREXATE [Concomitant]
     Indication: RHEUMATOID ARTHRITIS
     Route: 048
     Dates: end: 20101001
  3. HUMIRA [Suspect]
     Route: 058
     Dates: start: 20050501, end: 20100401

REACTIONS (10)
  - LIMB INJURY [None]
  - HAEMATOMA [None]
  - WEIGHT INCREASED [None]
  - SKIN EXFOLIATION [None]
  - RHEUMATOID ARTHRITIS [None]
  - WOUND INFECTION [None]
  - CELLULITIS [None]
  - DRUG INEFFECTIVE [None]
  - IMPAIRED HEALING [None]
  - OPEN WOUND [None]
